FAERS Safety Report 8291677-1 (Version None)
Quarter: 2012Q2

REPORT INFORMATION
  Report Type: 
  Country: None (occurrence: None)
  Receive Date: 20120417
  Receipt Date: 20111116
  Transmission Date: 20120825
  Serious: No
  Sender: FDA-Public Use
  Company Number: US-ASTRAZENECA-2011SE70058

PATIENT
  Age: 59 Year
  Sex: Female

DRUGS (4)
  1. NEXIUM [Suspect]
     Dosage: EVERYDAY
     Route: 048
  2. NEXIUM [Suspect]
     Dosage: TWICE DAILY
     Route: 048
  3. CRESTOR [Concomitant]
  4. TOPROL-XL [Concomitant]

REACTIONS (2)
  - DYSPEPSIA [None]
  - DRUG DISPENSING ERROR [None]
